FAERS Safety Report 5105116-2 (Version None)
Quarter: 2006Q3

REPORT INFORMATION
  Report Type: 
  Country: None (occurrence: None)
  Receive Date: 20060914
  Receipt Date: 20060830
  Transmission Date: 20061208
  Serious: Yes (Hospitalization)
  Sender: FDA-Public Use
  Company Number: US-JNJFOC-20060105317

PATIENT
  Sex: Female

DRUGS (3)
  1. ORTHO EVRA [Suspect]
     Indication: CONTRACEPTION
     Route: 062
  2. SPRINTEC 28 [Suspect]
     Indication: CONTRACEPTION
     Route: 048
  3. ESSURE SYSTEM [Suspect]
     Indication: CONTRACEPTION

REACTIONS (3)
  - HYSTERECTOMY [None]
  - LOSS OF CONSCIOUSNESS [None]
  - VAGINAL HAEMORRHAGE [None]
